FAERS Safety Report 21745601 (Version 8)
Quarter: 2025Q1

REPORT INFORMATION
  Report Type: Spontaneous
  Country: PT (occurrence: PT)
  Receive Date: 20221219
  Receipt Date: 20250124
  Transmission Date: 20250408
  Serious: Yes (Other)
  Sender: LEO PHARM
  Company Number: None

PATIENT
  Age: 44 Year
  Sex: Female
  Weight: 84 kg

DRUGS (7)
  1. ADBRY [Suspect]
     Active Substance: TRALOKINUMAB-LDRM
     Indication: Dermatitis atopic
     Dosage: 300MG 15/15 DIAS
     Route: 058
     Dates: start: 20220826, end: 202305
  2. ADBRY [Suspect]
     Active Substance: TRALOKINUMAB-LDRM
     Indication: Dermatitis atopic
     Dosage: 300MG 15/15 DIAS
     Route: 058
     Dates: start: 20220826, end: 202305
  3. ADBRY [Suspect]
     Active Substance: TRALOKINUMAB-LDRM
     Indication: Dermatitis atopic
     Dosage: 300MG 15/15 DIAS
     Route: 058
     Dates: start: 20220826, end: 202305
  4. CLOBETASOL [Concomitant]
     Active Substance: CLOBETASOL
     Indication: Product used for unknown indication
     Route: 003
  5. ELIDEL [Concomitant]
     Active Substance: PIMECROLIMUS
     Indication: Product used for unknown indication
     Route: 003
  6. DROSPIRENONE [Concomitant]
     Active Substance: DROSPIRENONE
     Indication: Product used for unknown indication
     Dosage: DROSPIRENONE + ETHINYL ESTRADIOL (YASMINELLE) ONCE A DAY?	?3 MG + 0.02 MG
     Route: 048
  7. ZABAK [Concomitant]
     Indication: Product used for unknown indication
     Route: 048

REACTIONS (4)
  - Asthma [Recovered/Resolved]
  - Drug ineffective [Not Recovered/Not Resolved]
  - Respiratory tract infection [Recovered/Resolved]
  - Conjunctivitis bacterial [Not Recovered/Not Resolved]

NARRATIVE: CASE EVENT DATE: 20221001
